FAERS Safety Report 8555295-X (Version None)
Quarter: 2012Q3

REPORT INFORMATION
  Report Type: 
  Country: None (occurrence: None)
  Receive Date: 20120731
  Receipt Date: 20110825
  Transmission Date: 20120928
  Serious: No
  Sender: FDA-Public Use
  Company Number: US-ASTRAZENECA-2011SE51287

PATIENT
  Age: 58 Year
  Sex: Female
  Weight: 63.5 kg

DRUGS (5)
  1. TEMAZEPAM [Concomitant]
     Indication: SLEEP DISORDER
  2. SEROQUEL XR [Suspect]
     Indication: SLEEP DISORDER
     Route: 048
  3. PREMARIN [Concomitant]
     Indication: HYSTERECTOMY
  4. GABAPENTIN [Concomitant]
     Indication: SCIATIC NERVE INJURY
  5. HYDROCODON-AMPHETAMINE [Concomitant]
     Indication: BACK PAIN

REACTIONS (2)
  - OFF LABEL USE [None]
  - INSOMNIA [None]
